FAERS Safety Report 22799400 (Version 3)
Quarter: 2024Q2

REPORT INFORMATION
  Report Type: Spontaneous
  Country: FR (occurrence: FR)
  Receive Date: 20230808
  Receipt Date: 20240430
  Transmission Date: 20240715
  Serious: Yes (Other)
  Sender: FDA-Public Use
  Company Number: None

PATIENT
  Age: 56 Year
  Sex: Female
  Weight: 65 kg

DRUGS (18)
  1. PACLITAXEL [Suspect]
     Active Substance: PACLITAXEL
     Indication: Cervix carcinoma
     Dosage: ROA: INTRAVENOUS (NOT OTHERWISE SPECIFIED) ( INT )
     Dates: start: 20230628, end: 20230628
  2. ONDANSETRON [Suspect]
     Active Substance: ONDANSETRON
     Indication: Chemotherapy side effect prophylaxis
     Dosage: ROA: UNKNOWN
     Dates: start: 20230628, end: 20230628
  3. CARBOPLATIN [Suspect]
     Active Substance: CARBOPLATIN
     Indication: Cervix carcinoma
     Dosage: ROA: INTRAVENOUS (NOT OTHERWISE SPECIFIED) ( INT )
     Dates: start: 20230628, end: 20230628
  4. DEXCHLORPHENIRAMINE MALEATE [Concomitant]
     Active Substance: DEXCHLORPHENIRAMINE MALEATE
     Indication: Chemotherapy side effect prophylaxis
     Dosage: ROA: UNKNOWN
     Dates: start: 20230628, end: 20230628
  5. LEVOTHYROXINE [Concomitant]
     Active Substance: LEVOTHYROXINE\LEVOTHYROXINE SODIUM
     Dosage: ROA: ORAL
  6. LEVOTHYROXINE [Concomitant]
     Active Substance: LEVOTHYROXINE\LEVOTHYROXINE SODIUM
     Indication: Product used for unknown indication
  7. APREPITANT [Concomitant]
     Active Substance: APREPITANT
     Indication: Chemotherapy side effect prophylaxis
     Dosage: ROA: ORAL
     Dates: start: 20230628, end: 20230628
  8. CIMETIDINE [Concomitant]
     Active Substance: CIMETIDINE
     Indication: Chemotherapy side effect prophylaxis
     Dosage: ROA; ORAL
     Dates: start: 20230628, end: 20230628
  9. VOGALENE [Concomitant]
     Active Substance: METOPIMAZINE
     Indication: Vomiting
     Dosage: ROA: ORAL
     Dates: start: 20230628, end: 20230701
  10. VOGALENE [Concomitant]
     Active Substance: METOPIMAZINE
     Indication: Vomiting
  11. NEBIVOLOL [Concomitant]
     Active Substance: NEBIVOLOL
     Dosage: ROA: ORAL
  12. NEBIVOLOL [Concomitant]
     Active Substance: NEBIVOLOL
     Indication: Product used for unknown indication
  13. AVASTIN [Concomitant]
     Active Substance: BEVACIZUMAB
     Indication: Cervix carcinoma
     Dosage: ROA: INTRAVENOUS (NOT OTHERWISE SPECIFIED) ( INT )
     Dates: start: 20230628, end: 20230628
  14. KEYTRUDA [Concomitant]
     Active Substance: PEMBROLIZUMAB
     Indication: Cervix carcinoma
     Dosage: ROA: INTRAVENOUS (NOT OTHERWISE SPECIFIED) ( INT )
     Dates: start: 20230628, end: 20230628
  15. HERBALS\HOMEOPATHICS\PASSIFLORA INCARNATA FLOWER [Concomitant]
     Active Substance: HERBALS\HOMEOPATHICS\PASSIFLORA INCARNATA FLOWER
     Dosage: ROA: ORAL
  16. HERBALS\HOMEOPATHICS\PASSIFLORA INCARNATA FLOWER [Concomitant]
     Active Substance: HERBALS\HOMEOPATHICS\PASSIFLORA INCARNATA FLOWER
     Indication: Product used for unknown indication
  17. ALPRAZOLAM [Concomitant]
     Active Substance: ALPRAZOLAM
     Dosage: ROA: ORAL
  18. ALPRAZOLAM [Concomitant]
     Active Substance: ALPRAZOLAM
     Indication: Product used for unknown indication

REACTIONS (3)
  - Erythema [Recovering/Resolving]
  - Rash macular [Recovering/Resolving]
  - Neutropenia [Recovered/Resolved]

NARRATIVE: CASE EVENT DATE: 20230702
